FAERS Safety Report 26064903 (Version 2)
Quarter: 2025Q4

REPORT INFORMATION
  Report Type: Report from Study
  Country: US (occurrence: US)
  Receive Date: 20251119
  Receipt Date: 20251124
  Transmission Date: 20260118
  Serious: Yes (Other)
  Sender: ABBVIE
  Company Number: US-ABBVIE-6471403

PATIENT
  Age: 70 Year
  Sex: Male
  Weight: 77.111 kg

DRUGS (28)
  1. DUOPA [Suspect]
     Active Substance: CARBIDOPA\LEVODOPA
     Indication: Parkinson^s disease
     Dosage: 24-HOUR INFUSION
     Route: 050
     Dates: start: 202402, end: 202509
  2. DUOPA [Suspect]
     Active Substance: CARBIDOPA\LEVODOPA
     Route: 050
     Dates: start: 2025
  3. VYALEV [Suspect]
     Active Substance: FOSCARBIDOPA\FOSLEVODOPA
     Indication: Parkinson^s disease
     Dosage: 0.45 ML, CONTINUOUS 24-HOUR INFUSION, FREQUENCY 9 HR
     Route: 058
     Dates: start: 20250909, end: 20251017
  4. VYALEV [Suspect]
     Active Substance: FOSCARBIDOPA\FOSLEVODOPA
     Dosage: FIRST ADMIN 2025
     Route: 058
     Dates: end: 20251017
  5. VYALEV [Suspect]
     Active Substance: FOSCARBIDOPA\FOSLEVODOPA
     Dosage: CONTINUOUS 24-HOUR INFUSION, FIRST ADMIN DATE: SEP 2025
     Route: 058
     Dates: end: 20250930
  6. Dulcolax [Concomitant]
     Indication: Product used for unknown indication
  7. DONEPEZIL [Concomitant]
     Active Substance: DONEPEZIL
     Indication: Product used for unknown indication
     Dosage: 10 MG, 1 TAB ONCE DAILY AM
  8. COLACE [Concomitant]
     Active Substance: DOCUSATE SODIUM
     Indication: Product used for unknown indication
  9. CARBIDOPA LEVODOPA [Concomitant]
     Active Substance: CARBIDOPA\LEVODOPA
     Indication: Product used for unknown indication
     Dosage: 25-100 MG, 1 TAB TWICE DAILY
  10. INBRIJA [Concomitant]
     Active Substance: LEVODOPA
     Indication: Product used for unknown indication
  11. FAMOTIDINE [Concomitant]
     Active Substance: FAMOTIDINE
     Indication: Product used for unknown indication
     Dosage: 20 MG, 1 TAB ONCE DAILY QAM
  12. ENTACAPONE [Concomitant]
     Active Substance: ENTACAPONE
     Indication: Product used for unknown indication
  13. FOLATE SODIUM [Concomitant]
     Active Substance: FOLATE SODIUM
     Indication: Product used for unknown indication
     Dosage: 666 MCG, DFE, 400 MCG, 1 TAB PO QAM
  14. VITAMIN B12 [Concomitant]
     Active Substance: CYANOCOBALAMIN
     Indication: Product used for unknown indication
     Dosage: 1000 MCG, 1 TAB ONCE DAILY QAM
  15. QUETIAPINE FUMARATE [Concomitant]
     Active Substance: QUETIAPINE FUMARATE
     Indication: Product used for unknown indication
     Dosage: 50 MG, 2 TABS QHS
  16. POLYETHYLENE GLYCOL 3350 [Concomitant]
     Active Substance: POLYETHYLENE GLYCOL 3350
     Indication: Product used for unknown indication
  17. MIDODRINE [Concomitant]
     Active Substance: MIDODRINE
     Indication: Product used for unknown indication
     Dosage: 2.5 MG, TID
  18. Metamucil Smooth Texture [Concomitant]
     Indication: Product used for unknown indication
  19. ACETAMINOPHEN [Concomitant]
     Active Substance: ACETAMINOPHEN
     Indication: Product used for unknown indication
     Dosage: 500 MG, 2 TABS ONCE DAILY QAM
  20. ESCITALOPRAM OXALATE [Concomitant]
     Active Substance: ESCITALOPRAM OXALATE
     Indication: Product used for unknown indication
     Dosage: 10 MG, 20 MG, 1 TAB ONCE DAILY AM
  21. TROSPIUM CHLORIDE [Concomitant]
     Active Substance: TROSPIUM CHLORIDE
     Indication: Product used for unknown indication
     Dosage: 20 MG, TAB ONCE DAILY AM
  22. IBUPROFEN [Concomitant]
     Active Substance: IBUPROFEN
     Indication: Product used for unknown indication
  23. VITAMIN D3 [Concomitant]
     Active Substance: CHOLECALCIFEROL
     Indication: Product used for unknown indication
     Dosage: 5000 IU, 125 MCG, 1 CAPSULE ONCE DAILY QAM
  24. LATANOPROST [Concomitant]
     Active Substance: LATANOPROST
     Indication: Product used for unknown indication
  25. STOOL SOFTENER (DOCUSATE) [Concomitant]
     Active Substance: DOCUSATE
     Indication: Product used for unknown indication
     Dosage: 100 MG, 2 TABS ONCE DAILY QAM
  26. PROBIOTICS NOS [Concomitant]
     Active Substance: PROBIOTICS NOS
     Indication: Product used for unknown indication
     Dosage: 1 TAB ONCE DAILY QAM
  27. MAGNESIUM [Concomitant]
     Active Substance: MAGNESIUM
     Indication: Product used for unknown indication
     Dosage: 200 MG, 1 TAB ONCE DAILY QHS
  28. MYRBETRIQ [Concomitant]
     Active Substance: MIRABEGRON
     Indication: Product used for unknown indication
     Dosage: EXTENDED RELEASE, 50 MG, 1/2 TAB ONCE DAILY QHS

REACTIONS (20)
  - Malaise [Unknown]
  - Infusion site swelling [Recovered/Resolved]
  - Infusion site pain [Recovered/Resolved]
  - Infusion site pain [Recovered/Resolved]
  - Infusion site cellulitis [Recovered/Resolved]
  - Infusion site reaction [Recovered/Resolved]
  - Infusion site urticaria [Recovered/Resolved]
  - Infusion site erythema [Recovered/Resolved]
  - Infusion site inflammation [Recovered/Resolved]
  - Infusion site warmth [Unknown]
  - Abscess [Unknown]
  - Infusion site pain [Recovered/Resolved]
  - Chills [Unknown]
  - Hyperhidrosis [Unknown]
  - Infusion site swelling [Recovered/Resolved with Sequelae]
  - Infusion site reaction [Recovered/Resolved]
  - Seroma [Recovered/Resolved]
  - Infusion site cellulitis [Recovered/Resolved]
  - Infusion site erythema [Recovered/Resolved]
  - Seroma [Recovered/Resolved]

NARRATIVE: CASE EVENT DATE: 20250101
